FAERS Safety Report 7208861-8 (Version None)
Quarter: 2011Q1

REPORT INFORMATION
  Report Type: 
  Country: None (occurrence: None)
  Receive Date: 20110104
  Receipt Date: 20101221
  Transmission Date: 20110831
  Serious: Yes (Other)
  Sender: FDA-Public Use
  Company Number: PHHY2010JP87981

PATIENT
  Sex: Male
  Weight: 65 kg

DRUGS (9)
  1. EXJADE [Suspect]
     Indication: IRON OVERLOAD
     Dosage: 1250 MG, QD
     Route: 048
     Dates: start: 20090303
  2. VALTREX [Concomitant]
     Indication: MYELOFIBROSIS
     Dosage: 500 MG, UNK
     Route: 048
     Dates: start: 20090412, end: 20100624
  3. PROGRAF [Concomitant]
     Indication: MYELOFIBROSIS
     Dosage: 6 MG, UNK
     Route: 048
     Dates: start: 20090403, end: 20100303
  4. ZYLORIC [Concomitant]
     Indication: MYELOFIBROSIS
     Dosage: 200 MG, UNK
     Route: 048
     Dates: start: 20090412, end: 20100303
  5. HEPARIN [Concomitant]
     Indication: MYELOFIBROSIS
     Dosage: UNK
     Dates: start: 20090412, end: 20100624
  6. ADALAT [Concomitant]
     Indication: CHRONIC GRAFT VERSUS HOST DISEASE
     Dosage: 10 MG, UNK
     Route: 048
     Dates: start: 20090412, end: 20100303
  7. URSO 250 [Concomitant]
     Indication: MYELOFIBROSIS
     Dosage: 600 MG, UNK
     Route: 048
     Dates: start: 20090412, end: 20100624
  8. VFEND [Concomitant]
     Indication: PROPHYLAXIS
     Dosage: 600 MG, UNK
     Route: 048
     Dates: start: 20090412, end: 20100303
  9. POSTERISAN [Concomitant]
     Indication: MYELOFIBROSIS
     Dosage: UNK
     Dates: start: 20090412, end: 20100624

REACTIONS (4)
  - DRY EYE [None]
  - GRAFT VERSUS HOST DISEASE [None]
  - CONCOMITANT DISEASE AGGRAVATED [None]
  - RASH [None]
